FAERS Safety Report 9340693 (Version 1)
Quarter: 2013Q2

REPORT INFORMATION
  Report Type: Spontaneous
  Country: IT (occurrence: NL)
  Receive Date: 20130610
  Receipt Date: 20130610
  Transmission Date: 20140414
  Serious: Yes (Other)
  Sender: FDA-Public Use
  Company Number: NL-FRI-1000045815

PATIENT
  Age: 40 Year
  Sex: Male
  Weight: 90 kg

DRUGS (1)
  1. NEBIVOLOL [Suspect]
     Indication: HYPERTENSION
     Dosage: 2.5 MG
     Route: 048
     Dates: start: 20130415, end: 20130426

REACTIONS (2)
  - Suicidal ideation [Not Recovered/Not Resolved]
  - Delusion [Recovered/Resolved]
